FAERS Safety Report 6249891-2 (Version None)
Quarter: 2009Q2

REPORT INFORMATION
  Report Type: 
  Country: None (occurrence: None)
  Receive Date: 20090629
  Receipt Date: 20090624
  Transmission Date: 20091009
  Serious: Yes (Other)
  Sender: FDA-Public Use
  Company Number: US-ASTRAZENECA-2009UW17558

PATIENT
  Age: 72 Year
  Sex: Female
  Weight: 63.5 kg

DRUGS (6)
  1. RHINOCORT [Suspect]
     Indication: SEASONAL ALLERGY
     Dosage: 2 SPRAYS EACH NOSTRIL DAILY
     Route: 045
  2. HYDROCHLOROTHIAZIDE [Concomitant]
     Indication: BLOOD PRESSURE
  3. SALINE [Concomitant]
     Route: 045
  4. CORICIDIN [Concomitant]
     Indication: MULTIPLE ALLERGIES
  5. COZAAR [Concomitant]
     Indication: HYPERTENSION
  6. NORVASC [Concomitant]
     Indication: HYPERTENSION

REACTIONS (8)
  - ABNORMAL SENSATION IN EYE [None]
  - BLOOD PRESSURE DECREASED [None]
  - CEREBROVASCULAR ACCIDENT [None]
  - EPISTAXIS [None]
  - FATIGUE [None]
  - GLAUCOMA [None]
  - HEART RATE DECREASED [None]
  - SCAB [None]
